FAERS Safety Report 5283980-4 (Version None)
Quarter: 2007Q1

REPORT INFORMATION
  Report Type: 
  Country: None (occurrence: None)
  Receive Date: 20070327
  Receipt Date: 20070312
  Transmission Date: 20070707
  Serious: Yes (Hospitalization)
  Sender: FDA-Public Use
  Company Number: US019602

PATIENT
  Sex: Female

DRUGS (2)
  1. ACTIQ [Suspect]
     Indication: BACK PAIN
     Dates: start: 20050101
  2. ACTIQ [Suspect]
     Indication: BACK PAIN
     Dosage: 1200 UG Q4HR BUCCAL
     Route: 002
     Dates: start: 20060228

REACTIONS (11)
  - DENTAL CARIES [None]
  - DEPRESSION [None]
  - DRUG ABUSER [None]
  - DRUG DEPENDENCE [None]
  - DRUG WITHDRAWAL SYNDROME [None]
  - INADEQUATE ANALGESIA [None]
  - INAPPROPRIATE SCHEDULE OF DRUG ADMINISTRATION [None]
  - INCORRECT DRUG ADMINISTRATION RATE [None]
  - NEPHROLITHIASIS [None]
  - PERICARDITIS [None]
  - RHABDOMYOLYSIS [None]
